FAERS Safety Report 16643851 (Version 1)
Quarter: 2019Q3

REPORT INFORMATION
  Report Type: Spontaneous
  Country: US (occurrence: US)
  Receive Date: 20190729
  Receipt Date: 20190729
  Transmission Date: 20191004
  Serious: No
  Sender: FDA-Public Use
  Company Number: US-RISING PHARMACEUTICALS, INC.-2019RIS00356

PATIENT
  Sex: Female

DRUGS (2)
  1. LANSOPRAZOLE/AMOXICILLIN/CLARITHROMYCIN [Suspect]
     Active Substance: AMOXICILLIN\CLARITHROMYCIN\LANSOPRAZOLE
     Dosage: 4 DOSAGE UNITS, 2X/DAY (^4 IN THE AM, 4 IN THE PM^)
  2. KLONOPIN [Suspect]
     Active Substance: CLONAZEPAM

REACTIONS (3)
  - Insomnia [Not Recovered/Not Resolved]
  - Drug interaction [Unknown]
  - Dysgeusia [Not Recovered/Not Resolved]
